FAERS Safety Report 25650192 (Version 1)
Quarter: 2025Q3

REPORT INFORMATION
  Report Type: Spontaneous
  Country: US (occurrence: None)
  Receive Date: 20250805
  Receipt Date: 20250805
  Transmission Date: 20251021
  Serious: Yes (Life-Threatening, Hospitalization)
  Sender: FDA-CTU
  Company Number: None

PATIENT
  Age: 68 Year
  Sex: Male
  Weight: 94.6 kg

DRUGS (6)
  1. PIPERACILLIN AND TAZOBACTAM [Suspect]
     Active Substance: PIPERACILLIN SODIUM\TAZOBACTAM SODIUM
     Indication: Diverticulitis
     Route: 042
     Dates: start: 20250804, end: 20250804
  2. SODIUM CHLORIDE [Suspect]
     Active Substance: SODIUM CHLORIDE
     Indication: Diverticulitis
     Route: 042
     Dates: start: 20250804, end: 20250804
  3. Ondansetron HCl Injection 4mg [Concomitant]
     Dates: start: 20250804, end: 20250804
  4. Sodium Chloride 0.9% bolus 1000mL [Concomitant]
     Dates: start: 20250804, end: 20250804
  5. Ketorolac Injection 15mg [Concomitant]
     Dates: start: 20250804, end: 20250804
  6. Ioversol 320mg iodine/mL syringe 100mL [Concomitant]
     Dates: start: 20250804, end: 20250804

REACTIONS (4)
  - Skin burning sensation [None]
  - Dyspnoea [None]
  - Seizure [None]
  - Respiratory arrest [None]

NARRATIVE: CASE EVENT DATE: 20250804
